FAERS Safety Report 8238368-0 (Version None)
Quarter: 2012Q1

REPORT INFORMATION
  Report Type: 
  Country: None (occurrence: None)
  Receive Date: 20120326
  Receipt Date: 20120319
  Transmission Date: 20120608
  Serious: Yes (Hospitalization)
  Sender: FDA-Public Use
  Company Number: 2012SP014720

PATIENT
  Age: 52 Year
  Sex: Male

DRUGS (2)
  1. INTRON A [Suspect]
     Indication: MALIGNANT MELANOMA
     Dosage: 40 MIU, IV
     Route: 042
     Dates: start: 20111107
  2. TRYROXINE SODIUM [Concomitant]

REACTIONS (2)
  - POST PROCEDURAL INFECTION [None]
  - RADIATION SKIN INJURY [None]
